FAERS Safety Report 9300359 (Version 1)
Quarter: 2013Q2

REPORT INFORMATION
  Report Type: Spontaneous
  Country: CN (occurrence: CN)
  Receive Date: 20130521
  Receipt Date: 20130521
  Transmission Date: 20140414
  Serious: Yes (Other)
  Sender: FDA-Public Use
  Company Number: CN-OTSUKA-JP-2011-11519

PATIENT
  Age: 77 Year
  Sex: Male
  Weight: 60 kg

DRUGS (4)
  1. PLETAAL [Suspect]
     Indication: PERIPHERAL ARTERIAL OCCLUSIVE DISEASE
     Dosage: 50 MG MILLIGRAM(S), BID
     Route: 048
     Dates: start: 20110820, end: 20110822
  2. PLETAAL [Suspect]
     Indication: CEREBRAL INFARCTION
  3. PLETAAL [Suspect]
     Indication: PROPHYLAXIS
  4. NOVORAPID [Concomitant]
     Indication: DIABETES MELLITUS
     Dosage: UNK
     Route: 058

REACTIONS (2)
  - Somnolence [Recovered/Resolved]
  - Hypertension [Recovered/Resolved]
